FAERS Safety Report 16961692 (Version 14)
Quarter: 2022Q1

REPORT INFORMATION
  Report Type: Spontaneous
  Country: US (occurrence: US)
  Receive Date: 20191025
  Receipt Date: 20220217
  Transmission Date: 20220423
  Serious: Yes (Hospitalization, Other)
  Sender: FDA-Public Use
  Company Number: US-PFIZER INC-2018436535

PATIENT
  Age: 70 Year
  Sex: Female
  Weight: 84 kg

DRUGS (3)
  1. LYRICA [Suspect]
     Active Substance: PREGABALIN
     Indication: Intervertebral disc disorder
     Dosage: 150 MG, 3X/DAY (FOR 30 DAYS (1 CAPSULE, Q (EVERY) 8HRS)
     Route: 048
  2. LYRICA [Suspect]
     Active Substance: PREGABALIN
     Indication: Lumbar radiculopathy
  3. LYRICA [Suspect]
     Active Substance: PREGABALIN
     Indication: Neuralgia

REACTIONS (8)
  - Pain [Not Recovered/Not Resolved]
  - Neuropathy peripheral [Unknown]
  - Drug dependence [Unknown]
  - Ingrowing nail [Not Recovered/Not Resolved]
  - Visual impairment [Unknown]
  - Seasonal allergy [Unknown]
  - Sneezing [Unknown]
  - Emotional distress [Unknown]
